FAERS Safety Report 7807017-5 (Version None)
Quarter: 2011Q4

REPORT INFORMATION
  Report Type: 
  Country: None (occurrence: None)
  Receive Date: 20111011
  Receipt Date: 20110314
  Transmission Date: 20120403
  Serious: Yes (Other)
  Sender: FDA-Public Use
  Company Number: US-BAYER-201033847NA

PATIENT
  Age: 16 Year
  Sex: Female
  Weight: 79.365 kg

DRUGS (6)
  1. ZANTAC [Concomitant]
     Indication: PAIN
  2. NAPROXEN [Concomitant]
  3. YASMIN [Suspect]
     Indication: CONTRACEPTION
     Dosage: UNK
     Route: 048
     Dates: start: 20080801
  4. GLUCOPHAGE [Concomitant]
     Indication: PRODUCT USED FOR UNKNOWN INDICATION
  5. YAZ [Suspect]
     Indication: CONTRACEPTION
     Dosage: UNK
     Route: 048
     Dates: start: 20070901, end: 20080701
  6. TYLENOL W/ CODEINE NO. 3 [Concomitant]
     Indication: PAIN

REACTIONS (9)
  - NAUSEA [None]
  - PYREXIA [None]
  - GASTRITIS [None]
  - ABDOMINAL PAIN [None]
  - VOMITING [None]
  - CHOLELITHIASIS [None]
  - ABDOMINAL PAIN UPPER [None]
  - CHOLECYSTITIS CHRONIC [None]
  - CHOLECYSTITIS ACUTE [None]
